FAERS Safety Report 9123410 (Version 4)
Quarter: 2013Q4

REPORT INFORMATION
  Report Type: Spontaneous
  Country: US (occurrence: US)
  Receive Date: 20130227
  Receipt Date: 20131230
  Transmission Date: 20140711
  Serious: Yes (Hospitalization, Other)
  Sender: FDA-Public Use
  Company Number: US-009507513-1302USA012437

PATIENT
  Sex: Female
  Weight: 67.12 kg

DRUGS (10)
  1. FOSAMAX [Suspect]
     Indication: OSTEOPOROSIS
     Dosage: 10 MG, QD
     Route: 048
     Dates: start: 19970527, end: 20010806
  2. FOSAMAX [Suspect]
     Dosage: 70 MG, QW
     Route: 048
     Dates: start: 20010806, end: 20060115
  3. FOSAMAX [Suspect]
     Dosage: UNK
     Route: 048
     Dates: end: 20061115
  4. FOSAMAX [Suspect]
     Dosage: 70 MG, UNK
     Route: 048
     Dates: start: 20061228, end: 20070405
  5. FOSAMAX PLUS D [Suspect]
     Indication: OSTEOPOROSIS
     Dosage: 70/2800 MG, QW
     Route: 048
     Dates: start: 20070406, end: 20090713
  6. GINKGO [Concomitant]
     Indication: PRODUCT USED FOR UNKNOWN INDICATION
     Dosage: UNK, QD
     Dates: start: 1995
  7. ASCORBIC ACID [Concomitant]
     Indication: PRODUCT USED FOR UNKNOWN INDICATION
     Dosage: UNK, QD
     Dates: start: 1995
  8. VITAMIN D (UNSPECIFIED) [Concomitant]
     Indication: PRODUCT USED FOR UNKNOWN INDICATION
     Dosage: UNK, QD
     Dates: start: 1995
  9. CALCIUM (UNSPECIFIED) [Concomitant]
     Indication: PRODUCT USED FOR UNKNOWN INDICATION
     Dosage: UNK, QD
     Dates: start: 1995
  10. CYANOCOBALAMIN [Concomitant]
     Indication: PRODUCT USED FOR UNKNOWN INDICATION
     Dosage: UNK, QD
     Dates: start: 1995

REACTIONS (26)
  - Femur fracture [Unknown]
  - Intramedullary rod insertion [Unknown]
  - Intramedullary rod insertion [Unknown]
  - Injury [Unknown]
  - Fall [Unknown]
  - Fall [Unknown]
  - Haemorrhagic anaemia [Unknown]
  - Packed red blood cell transfusion [Unknown]
  - Femur fracture [Unknown]
  - Injury [Unknown]
  - Osteoarthritis [Unknown]
  - Cerumen impaction [Unknown]
  - Sciatica [Unknown]
  - Mitral valve incompetence [Unknown]
  - Scoliosis [Unknown]
  - Anxiety [Recovered/Resolved]
  - Blood pressure increased [Unknown]
  - Muscle strain [Unknown]
  - Burns first degree [Unknown]
  - Device failure [Unknown]
  - Infection [Unknown]
  - Muscle strain [Unknown]
  - Pain in extremity [Unknown]
  - Arthralgia [Unknown]
  - Drug hypersensitivity [Unknown]
  - Pain in extremity [Unknown]
